FAERS Safety Report 12933290 (Version 1)
Quarter: 2016Q4

REPORT INFORMATION
  Report Type: Spontaneous
  Country: US (occurrence: US)
  Receive Date: 20161111
  Receipt Date: 20161111
  Transmission Date: 20170207
  Serious: No
  Sender: FDA-Public Use
  Company Number: US-ELI_LILLY_AND_COMPANY-US201607006205

PATIENT
  Age: 32 Year
  Sex: Female

DRUGS (1)
  1. CYMBALTA [Suspect]
     Active Substance: DULOXETINE HYDROCHLORIDE
     Indication: PRODUCT USED FOR UNKNOWN INDICATION
     Dosage: 60 MG, UNKNOWN
     Route: 065
     Dates: end: 20151225

REACTIONS (23)
  - Fatigue [Unknown]
  - Agitation [Unknown]
  - Insomnia [Unknown]
  - Drug withdrawal syndrome [Unknown]
  - Dizziness [Unknown]
  - Tinnitus [Unknown]
  - Asthenia [Unknown]
  - Night sweats [Unknown]
  - Major depression [Unknown]
  - Affect lability [Unknown]
  - Paraesthesia [Unknown]
  - Hyperhidrosis [Unknown]
  - Dysphoria [Unknown]
  - Confusional state [Unknown]
  - Abnormal dreams [Unknown]
  - Nausea [Unknown]
  - Irritability [Unknown]
  - Lethargy [Unknown]
  - Depressed mood [Not Recovered/Not Resolved]
  - Anxiety [Unknown]
  - Headache [Unknown]
  - Weight increased [Unknown]
  - Anorgasmia [Unknown]

NARRATIVE: CASE EVENT DATE: 201602
